FAERS Safety Report 9107438 (Version 1)
Quarter: 2013Q1

REPORT INFORMATION
  Report Type: Spontaneous
  Country: US (occurrence: US)
  Receive Date: 20130221
  Receipt Date: 20130221
  Transmission Date: 20140127
  Serious: Yes (Other)
  Sender: FDA-Public Use
  Company Number: PHEH2013US004147

PATIENT
  Sex: Male

DRUGS (3)
  1. TOBI [Suspect]
     Indication: CYSTIC FIBROSIS
     Dosage: 300 MG, BID
     Dates: start: 201001
  2. CIPRO [Concomitant]
     Dosage: UNK UKN, UNK
  3. XOPENEX [Concomitant]
     Dosage: UNK UKN, UNK

REACTIONS (6)
  - Staphylococcal infection [Unknown]
  - Pseudomonas infection [Unknown]
  - Pulmonary function test decreased [Unknown]
  - Lung infection [Unknown]
  - Dyspnoea [Unknown]
  - Weight decreased [Unknown]
